FAERS Safety Report 17461358 (Version 3)
Quarter: 2020Q3

REPORT INFORMATION
  Report Type: Report from Study
  Country: SG (occurrence: SG)
  Receive Date: 20200226
  Receipt Date: 20200414
  Transmission Date: 20201105
  Serious: Yes (Death)
  Sender: FDA-Public Use
  Company Number: SG-ROCHE-2553690

PATIENT
  Age: 41 Year
  Sex: Female

DRUGS (4)
  1. POLATUZUMAB VEDOTIN. [Suspect]
     Active Substance: POLATUZUMAB VEDOTIN
     Indication: DIFFUSE LARGE B-CELL LYMPHOMA REFRACTORY
     Route: 065
     Dates: start: 20200120
  2. RITUXIMAB. [Suspect]
     Active Substance: RITUXIMAB
     Indication: DIFFUSE LARGE B-CELL LYMPHOMA REFRACTORY
     Route: 065
     Dates: start: 20200120
  3. BENDAMUSTINE [Suspect]
     Active Substance: BENDAMUSTINE
     Indication: DIFFUSE LARGE B-CELL LYMPHOMA REFRACTORY
     Route: 065
     Dates: start: 20200120
  4. VINORELBINE [Suspect]
     Active Substance: VINORELBINE TARTRATE
     Indication: DIFFUSE LARGE B-CELL LYMPHOMA
     Route: 065
     Dates: start: 20200120

REACTIONS (3)
  - Gastrointestinal haemorrhage [Fatal]
  - Escherichia bacteraemia [Fatal]
  - Wound infection [Fatal]

NARRATIVE: CASE EVENT DATE: 20200207
